FAERS Safety Report 10248804 (Version 2)
Quarter: 2014Q4

REPORT INFORMATION
  Report Type: Spontaneous
  Country: US (occurrence: US)
  Receive Date: 20140620
  Receipt Date: 20141119
  Transmission Date: 20150528
  Serious: Yes (Other)
  Sender: FDA-Public Use
  Company Number: US-SA-2014SA075581

PATIENT
  Age: 64 Year
  Sex: Male
  Weight: 127 kg

DRUGS (3)
  1. SOLOSTAR [Concomitant]
     Active Substance: DEVICE
     Dosage: MAY AND FEB
  2. LANTUS SOLOSTAR [Suspect]
     Active Substance: INSULIN GLARGINE
     Indication: TYPE 2 DIABETES MELLITUS
     Dosage: PRODUCT START: ABOUT 4 YEARS AGO?DOSE: 43 UNITS AT BEDTIME DOSE:43 UNIT(S)
     Route: 065
     Dates: start: 2010
  3. LANTUS SOLOSTAR [Suspect]
     Active Substance: INSULIN GLARGINE
     Indication: TYPE 2 DIABETES MELLITUS
     Dosage: PRODUCT START: ABOUT 4 YEARS AGO?DOSE: 43 UNITS AT BEDTIME DOSE:43 UNIT(S)
     Route: 065
     Dates: start: 2010

REACTIONS (1)
  - Dementia [Unknown]
